FAERS Safety Report 25698641 (Version 1)
Quarter: 2025Q3

REPORT INFORMATION
  Report Type: Spontaneous
  Country: EU (occurrence: EU)
  Receive Date: 20250819
  Receipt Date: 20250819
  Transmission Date: 20251021
  Serious: Yes (Other)
  Sender: AUROBINDO
  Company Number: EU-ASTRAZENECA-202507EEA028190IT

PATIENT

DRUGS (2)
  1. FULVESTRANT [Suspect]
     Active Substance: FULVESTRANT
     Indication: HER2 negative breast cancer
     Route: 065
  2. TRUQAP [Suspect]
     Active Substance: CAPIVASERTIB
     Indication: HER2 negative breast cancer
     Route: 065

REACTIONS (2)
  - Hyperpyrexia [Unknown]
  - Rash [Unknown]
